FAERS Safety Report 8836078 (Version 1)
Quarter: 2012Q4

REPORT INFORMATION
  Report Type: 
  Country: US (occurrence: US)
  Receive Date: 20121011
  Receipt Date: 20121011
  Transmission Date: 20130627
  Serious: Yes (Other)
  Sender: FDA-Public Use
  Company Number: US-AMGEN-USASP2012064109

PATIENT

DRUGS (1)
  1. PROCRIT [Suspect]
     Indication: RENAL TRANSPLANT
     Dosage: 40000 IU, UNK
     Route: 013

REACTIONS (1)
  - Graft thrombosis [Unknown]
